FAERS Safety Report 10234296 (Version 1)
Quarter: 2014Q2

REPORT INFORMATION
  Report Type: Spontaneous
  Country: US (occurrence: US)
  Receive Date: 20140612
  Receipt Date: 20140612
  Transmission Date: 20141212
  Serious: Yes (Other)
  Sender: FDA-Public Use
  Company Number: US-ELI_LILLY_AND_COMPANY-US201406001412

PATIENT
  Age: 64 Year
  Sex: Female

DRUGS (2)
  1. HUMALOG LISPRO [Suspect]
     Indication: TYPE 2 DIABETES MELLITUS
     Dosage: 10 U, QD
     Route: 065
  2. LEVEMIR [Concomitant]

REACTIONS (3)
  - Cataract [Unknown]
  - Eye swelling [Not Recovered/Not Resolved]
  - Visual impairment [Not Recovered/Not Resolved]
